FAERS Safety Report 9685653 (Version 3)
Quarter: 2014Q2

REPORT INFORMATION
  Report Type: Spontaneous
  Country: US (occurrence: US)
  Receive Date: 20131113
  Receipt Date: 20140429
  Transmission Date: 20141212
  Serious: Yes (Hospitalization, Other)
  Sender: FDA-Public Use
  Company Number: US-009507513-1311USA004020

PATIENT
  Sex: Female
  Weight: 68.27 kg

DRUGS (3)
  1. FOSAMAX [Suspect]
     Indication: OSTEOPOROSIS
     Dosage: 70 MG, QW
     Route: 048
     Dates: start: 2001, end: 2011
  2. FOSAMAX [Suspect]
     Indication: OSTEOPENIA
  3. HORMONES (UNSPECIFIED) [Concomitant]
     Dosage: UNK
     Dates: start: 1995, end: 2011

REACTIONS (14)
  - Intramedullary rod insertion [Unknown]
  - Hip fracture [Unknown]
  - Femur fracture [Unknown]
  - Low turnover osteopathy [Unknown]
  - Blood cholesterol increased [Unknown]
  - Diabetes mellitus [Unknown]
  - Heart rate increased [Unknown]
  - Bone disorder [Unknown]
  - Loose tooth [Unknown]
  - Tooth loss [Unknown]
  - Mitral valve incompetence [Not Recovered/Not Resolved]
  - Blood triglycerides increased [Not Recovered/Not Resolved]
  - Osteoarthritis [Unknown]
  - Haemorrhagic anaemia [Unknown]
